FAERS Safety Report 6993636-5 (Version None)
Quarter: 2010Q3

REPORT INFORMATION
  Report Type: 
  Country: None (occurrence: None)
  Receive Date: 20100917
  Receipt Date: 20070904
  Transmission Date: 20110219
  Serious: Yes (Other)
  Sender: FDA-Public Use
  Company Number: US-ASTRAZENECA-2006UW24016

PATIENT
  Age: 21209 Day
  Sex: Female
  Weight: 102.1 kg

DRUGS (14)
  1. SEROQUEL [Suspect]
     Route: 048
     Dates: start: 20000601, end: 20070304
  2. SEROQUEL [Suspect]
     Dosage: 25-100 MG
     Route: 048
     Dates: start: 20000601
  3. HALDOL [Concomitant]
  4. RISPERDAL [Concomitant]
     Dates: start: 20011106
  5. RISPERDAL [Concomitant]
     Dates: start: 20020101
  6. THORAZINE [Concomitant]
  7. ZYPREXA [Concomitant]
     Dates: start: 20000703
  8. PROZAC [Concomitant]
     Indication: BIPOLAR DISORDER
     Dates: start: 20000626
  9. MELLARIL [Concomitant]
     Dates: start: 20000626
  10. TRAZODONE HCL [Concomitant]
     Dates: start: 20000626
  11. CLONAZEPAM [Concomitant]
     Dates: start: 20011106
  12. NEURONTIN [Concomitant]
     Dates: start: 20011106
  13. AVANDIA [Concomitant]
     Dates: start: 20011106
  14. ZOLOFT [Concomitant]
     Route: 048
     Dates: start: 20000703

REACTIONS (2)
  - DIABETES MELLITUS [None]
  - KETOACIDOSIS [None]
